FAERS Safety Report 15838514 (Version 1)
Quarter: 2019Q1

REPORT INFORMATION
  Report Type: Spontaneous
  Country: US (occurrence: US)
  Receive Date: 20190117
  Receipt Date: 20190117
  Transmission Date: 20190417
  Serious: Yes (Other)
  Sender: FDA-Public Use
  Company Number: US-TEVA-2019-US-997324

PATIENT
  Sex: Male

DRUGS (11)
  1. TEMOZOLOMIDE. [Suspect]
     Active Substance: TEMOZOLOMIDE
     Indication: PERICARDIAL EFFUSION
  2. TRASTUZUMAB EMTANSINE (T-DM1) [Suspect]
     Active Substance: ADO-TRASTUZUMAB EMTANSINE
     Indication: MALIGNANT MELANOMA
     Route: 065
  3. TEMOZOLOMIDE. [Suspect]
     Active Substance: TEMOZOLOMIDE
     Indication: PLEURAL EFFUSION
  4. NIVOLUMAB [Suspect]
     Active Substance: NIVOLUMAB
     Indication: METASTASES TO LUNG
     Dosage: EVERY 2 WEEKS
     Route: 065
  5. TEMOZOLOMIDE. [Suspect]
     Active Substance: TEMOZOLOMIDE
     Indication: METASTASES TO LUNG
  6. TRASTUZUMAB EMTANSINE (T-DM1) [Suspect]
     Active Substance: ADO-TRASTUZUMAB EMTANSINE
     Indication: METASTASES TO LUNG
  7. IPILIMUMAB [Suspect]
     Active Substance: IPILIMUMAB
     Indication: MALIGNANT MELANOMA
     Route: 065
  8. TEMOZOLOMIDE. [Suspect]
     Active Substance: TEMOZOLOMIDE
     Indication: MALIGNANT MELANOMA
     Route: 065
  9. TRASTUZUMAB EMTANSINE (T-DM1) [Suspect]
     Active Substance: ADO-TRASTUZUMAB EMTANSINE
     Indication: PERICARDIAL EFFUSION
  10. IPILIMUMAB [Suspect]
     Active Substance: IPILIMUMAB
     Indication: METASTASES TO LUNG
  11. NIVOLUMAB [Suspect]
     Active Substance: NIVOLUMAB
     Indication: MALIGNANT MELANOMA
     Route: 065

REACTIONS (5)
  - Haemolytic anaemia [Unknown]
  - Pancytopenia [Unknown]
  - Transaminases increased [Recovering/Resolving]
  - Hepatic mass [Recovering/Resolving]
  - Off label use [Unknown]
